FAERS Safety Report 5271673-9 (Version None)
Quarter: 2007Q1

REPORT INFORMATION
  Report Type: 
  Country: None (occurrence: None)
  Receive Date: 20070321
  Receipt Date: 20060915
  Transmission Date: 20070707
  Serious: Yes (Death, Life-Threatening, Other)
  Sender: FDA-Public Use
  Company Number: JP-PFIZER INC-2006096733

PATIENT
  Sex: Male
  Weight: 42 kg

DRUGS (3)
  1. VFEND [Suspect]
     Indication: BRONCHOPULMONARY ASPERGILLOSIS
     Dosage: DAILY DOSE:400MG
     Route: 048
     Dates: start: 20060728, end: 20060803
  2. CEFOBID [Concomitant]
     Route: 042
     Dates: start: 20060719, end: 20060724
  3. POTACOL-R [Concomitant]
     Route: 042
     Dates: start: 20060719, end: 20060803

REACTIONS (5)
  - BRONCHOPULMONARY ASPERGILLOSIS [None]
  - CONDITION AGGRAVATED [None]
  - DRUG INEFFECTIVE [None]
  - PYREXIA [None]
  - RHABDOMYOLYSIS [None]
